FAERS Safety Report 5981231-6 (Version None)
Quarter: 2008Q4

REPORT INFORMATION
  Report Type: 
  Country: None (occurrence: None)
  Receive Date: 20081205
  Receipt Date: 20081201
  Transmission Date: 20090506
  Serious: Yes (Death)
  Sender: FDA-Public Use
  Company Number: CH-BRISTOL-MYERS SQUIBB COMPANY-14424139

PATIENT
  Age: 68 Year
  Sex: Male

DRUGS (3)
  1. CISPLATIN [Suspect]
     Indication: OESOPHAGEAL CARCINOMA
     Dosage: AND ALSO RECEIVED WEEKLY 25 MG/M 2
  2. DOCETAXEL [Suspect]
     Indication: OESOPHAGEAL CARCINOMA
     Dosage: ALSO RECEIVED 15MG/M2 WEEKLY.
  3. RADIATION THERAPY [Suspect]
     Indication: OESOPHAGEAL CARCINOMA
     Dosage: 1 DOSAGE FORM = 59.4GY, IN 33 FRACTIONS.

REACTIONS (2)
  - HERPES SIMPLEX HEPATITIS [None]
  - RENAL FAILURE ACUTE [None]
